FAERS Safety Report 4920833-2 (Version None)
Quarter: 2006Q1

REPORT INFORMATION
  Report Type: 
  Country: None (occurrence: None)
  Receive Date: 20060113
  Receipt Date: 20050921
  Transmission Date: 20060701
  Serious: No
  Sender: FDA-Public Use
  Company Number: 2005SP003145

PATIENT
  Age: 66 Year
  Sex: Female
  Weight: 92.9874 kg

DRUGS (5)
  1. LUNESTA [Suspect]
     Indication: INITIAL INSOMNIA
     Dosage: 3 MG;HS;ORAL
     Route: 048
     Dates: start: 20050901, end: 20050901
  2. NORVASC [Concomitant]
  3. EVISTA [Concomitant]
  4. LIPITOR /NET/ [Concomitant]
  5. PROZAC [Concomitant]

REACTIONS (2)
  - INITIAL INSOMNIA [None]
  - SOMNOLENCE [None]
